FAERS Safety Report 7488471-8 (Version None)
Quarter: 2011Q2

REPORT INFORMATION
  Report Type: 
  Country: None (occurrence: None)
  Receive Date: 20110518
  Receipt Date: 20110504
  Transmission Date: 20111010
  Serious: Yes (Hospitalization)
  Sender: FDA-Public Use
  Company Number: CA-JNJFOC-20110502922

PATIENT
  Sex: Male
  Weight: 37 kg

DRUGS (2)
  1. REMICADE [Suspect]
     Indication: CROHN'S DISEASE
     Route: 042
     Dates: start: 20090101, end: 20110117
  2. REMICADE [Suspect]
     Route: 042

REACTIONS (4)
  - WEIGHT DECREASED [None]
  - ANASTOMOTIC LEAK [None]
  - ABSCESS [None]
  - INTESTINAL OBSTRUCTION [None]
